FAERS Safety Report 21297314 (Version 1)
Quarter: 2022Q3

REPORT INFORMATION
  Report Type: Report from Study
  Country: FR (occurrence: FR)
  Receive Date: 20220906
  Receipt Date: 20220906
  Transmission Date: 20221027
  Serious: Yes (Other)
  Sender: FDA-Public Use
  Company Number: FR-NOVARTISPH-NVSC2022FR077865

PATIENT
  Age: 79 Year
  Sex: Male
  Weight: 73 kg

DRUGS (6)
  1. PLUVICTO [Suspect]
     Active Substance: LUTETIUM LU-177 VIPIVOTIDE TETRAXETAN
     Indication: Hormone-refractory prostate cancer
     Dosage: 6960 MBQ, ONCE
     Route: 042
     Dates: start: 20220217, end: 20220217
  2. PLUVICTO [Suspect]
     Active Substance: LUTETIUM LU-177 VIPIVOTIDE TETRAXETAN
     Dosage: 5618 MBQ, ONCE
     Route: 042
     Dates: start: 20220331, end: 20220331
  3. PLUVICTO [Suspect]
     Active Substance: LUTETIUM LU-177 VIPIVOTIDE TETRAXETAN
     Dosage: 6967 MBQ, ONCE
     Route: 042
     Dates: start: 20220622, end: 20220622
  4. PLUVICTO [Suspect]
     Active Substance: LUTETIUM LU-177 VIPIVOTIDE TETRAXETAN
     Dosage: UNK
     Route: 042
     Dates: start: 20220829, end: 20220829
  5. ELIQUIS [Concomitant]
     Active Substance: APIXABAN
     Indication: Arrhythmia
     Dosage: UNK
     Route: 065
  6. DENOSUMAB [Concomitant]
     Active Substance: DENOSUMAB
     Indication: Product used for unknown indication
     Dosage: UNK
     Route: 065

REACTIONS (4)
  - Hip fracture [Recovered/Resolved]
  - Anaemia [Recovered/Resolved]
  - Anaemia [Recovering/Resolving]
  - Urinary tract infection [Recovered/Resolved]

NARRATIVE: CASE EVENT DATE: 20220224
